FAERS Safety Report 21986604 (Version 1)
Quarter: 2023Q1

REPORT INFORMATION
  Report Type: Spontaneous
  Country: US (occurrence: US)
  Receive Date: 20230213
  Receipt Date: 20230213
  Transmission Date: 20230418
  Serious: Yes (Hospitalization)
  Sender: FDA-Public Use
  Company Number: US-PFIZER INC-202300059167

PATIENT
  Age: 83 Year
  Sex: Female
  Weight: 97.52 kg

DRUGS (2)
  1. IBRANCE [Suspect]
     Active Substance: PALBOCICLIB
     Indication: Breast cancer female
     Dosage: 100 MG, CYCLIC (ONE CAPSULE DAILY BY MOUTH 3 WEEKS AND THEN OFF FOR ONE WEEK)
  2. FEMARA [Concomitant]
     Active Substance: LETROZOLE
     Indication: Breast cancer female
     Dosage: 2.5 MG, DAILY (NIGHTLY, STARTED SAME TIME AS IBRANCE)

REACTIONS (6)
  - COVID-19 [Not Recovered/Not Resolved]
  - Pollakiuria [Unknown]
  - Palpitations [Recovered/Resolved]
  - Weight decreased [Unknown]
  - Muscular weakness [Unknown]
  - Heart rate increased [Recovered/Resolved]
